FAERS Safety Report 11026440 (Version 1)
Quarter: 2015Q2

REPORT INFORMATION
  Report Type: Spontaneous
  Country: US (occurrence: None)
  Receive Date: 20150413
  Receipt Date: 20150413
  Transmission Date: 20150821
  Serious: No
  Sender: FDA-Public Use
  Company Number: None

PATIENT
  Age: 50 Year
  Sex: Male
  Weight: 113.4 kg

DRUGS (9)
  1. ASPIRIN. [Concomitant]
     Active Substance: ASPIRIN
  2. TAMSULOSIN [Concomitant]
     Active Substance: TAMSULOSIN
  3. OMEGA 3 [Concomitant]
     Active Substance: OMEGA-3 FATTY ACIDS
  4. CRESTOR [Suspect]
     Active Substance: ROSUVASTATIN CALCIUM
     Indication: BLOOD CHOLESTEROL ABNORMAL
     Dosage: TAKEN BY MOUTH, 1 TABLET
     Route: 048
  5. MULTIVITAMIN [Concomitant]
     Active Substance: VITAMINS
  6. COQ10 [Concomitant]
     Active Substance: UBIDECARENONE
  7. FLONASE [Concomitant]
     Active Substance: FLUTICASONE PROPIONATE
  8. PLAVIX [Concomitant]
     Active Substance: CLOPIDOGREL BISULFATE
  9. TYLENOL [Concomitant]
     Active Substance: ACETAMINOPHEN

REACTIONS (10)
  - Disturbance in attention [None]
  - Memory impairment [None]
  - Frustration [None]
  - Mental disorder [None]
  - Cognitive disorder [None]
  - Confusional state [None]
  - Speech disorder [None]
  - Aphasia [None]
  - Executive dysfunction [None]
  - Pain [None]

NARRATIVE: CASE EVENT DATE: 20150201
